FAERS Safety Report 13533045 (Version 1)
Quarter: 2017Q2

REPORT INFORMATION
  Report Type: Report from Study
  Country: BR (occurrence: BR)
  Receive Date: 20170510
  Receipt Date: 20170510
  Transmission Date: 20170830
  Serious: Yes (Life-Threatening)
  Sender: FDA-Public Use
  Company Number: PHHY2017BR068637

PATIENT
  Sex: Female
  Weight: 70 kg

DRUGS (1)
  1. EXELON PATCH [Suspect]
     Active Substance: RIVASTIGMINE
     Indication: PRODUCT USED FOR UNKNOWN INDICATION
     Dosage: 4.6 MG, QD PATCH 5 (CM2)
     Route: 062

REACTIONS (8)
  - Drug ineffective [Unknown]
  - Depression [Unknown]
  - Body height decreased [Unknown]
  - Malaise [Unknown]
  - Near drowning [Unknown]
  - Salivary hypersecretion [Unknown]
  - Thirst [Unknown]
  - Dizziness [Unknown]
